FAERS Safety Report 5489009-7 (Version None)
Quarter: 2007Q4

REPORT INFORMATION
  Report Type: 
  Country: None (occurrence: None)
  Receive Date: 20071016
  Receipt Date: 20070808
  Transmission Date: 20080405
  Serious: Yes (Hospitalization)
  Sender: FDA-Public Use
  Company Number: RENA-12321

PATIENT
  Age: 67 Year
  Sex: Male

DRUGS (3)
  1. RENAGEL [Suspect]
     Indication: HYPERPHOSPHATAEMIA
  2. METOCLOPRAMIDE [Suspect]
     Dates: start: 20070301
  3. NEURONTIN [Concomitant]

REACTIONS (5)
  - BLOOD URINE PRESENT [None]
  - DRUG CLEARANCE DECREASED [None]
  - DRUG TOXICITY [None]
  - INFECTION [None]
  - PARKINSONISM [None]
